FAERS Safety Report 8639382 (Version 4)
Quarter: 2012Q4

REPORT INFORMATION
  Report Type: 
  Country: JP (occurrence: JP)
  Receive Date: 20120627
  Receipt Date: 20121012
  Transmission Date: 20130627
  Serious: Yes (Hospitalization)
  Sender: FDA-Public Use
  Company Number: JP-JNJFOC-20120611556

PATIENT
  Age: 88 Year
  Sex: Female
  Weight: 40 kg

DRUGS (6)
  1. RISPERDAL [Suspect]
     Indication: DELUSION
     Route: 048
     Dates: start: 20080104, end: 20080110
  2. ETHYL ICOSAPENTATE [Concomitant]
     Indication: CEREBROVASCULAR DISORDER
     Route: 048
     Dates: start: 20080104, end: 20080110
  3. GASMOTIN [Concomitant]
     Indication: GASTRIC ULCER
     Route: 048
     Dates: start: 20080104, end: 20080623
  4. ADETPHOS [Concomitant]
     Indication: CEREBROVASCULAR DISORDER
     Route: 048
     Dates: start: 20080104, end: 20080110
  5. NIVADIL [Concomitant]
     Indication: HYPERTENSION
     Route: 048
     Dates: start: 20080104, end: 20080110
  6. BLOPRESS [Concomitant]
     Indication: HYPERTENSION
     Route: 048
     Dates: start: 20080104, end: 20080623

REACTIONS (3)
  - Femoral neck fracture [Recovered/Resolved with Sequelae]
  - Irritability [Unknown]
  - Anxiety [Unknown]
